FAERS Safety Report 19183991 (Version 1)
Quarter: 2021Q2

REPORT INFORMATION
  Report Type: Spontaneous
  Country: US (occurrence: US)
  Receive Date: 20210427
  Receipt Date: 20210427
  Transmission Date: 20210717
  Serious: Yes (Death, Life-Threatening, Hospitalization, Other)
  Sender: FDA-Public Use
  Company Number: US-ALVOGEN-2021-ALVOGEN-116896

PATIENT
  Age: 3 Year
  Sex: Female

DRUGS (1)
  1. FENTANYL. [Suspect]
     Active Substance: FENTANYL
     Indication: PRODUCT USED FOR UNKNOWN INDICATION
     Route: 062

REACTIONS (7)
  - Respiratory failure [Fatal]
  - Unresponsive to stimuli [Fatal]
  - Accidental exposure to product [Fatal]
  - Papilloedema [Fatal]
  - Accidental overdose [Fatal]
  - Hypotension [Fatal]
  - Brain oedema [Fatal]
